FAERS Safety Report 9195968 (Version 1)
Quarter: 2013Q1

REPORT INFORMATION
  Report Type: Spontaneous
  Country: CA (occurrence: CA)
  Receive Date: 20130328
  Receipt Date: 20130328
  Transmission Date: 20140127
  Serious: Yes (Death)
  Sender: FDA-Public Use
  Company Number: PHHY2012CA038906

PATIENT
  Age: 53 Year
  Sex: Male

DRUGS (1)
  1. ZOMETA [Suspect]
     Indication: RENAL CELL CARCINOMA
     Dosage: 4 MG/100 ML, EVERY 8 WEEKS
     Route: 042
     Dates: start: 20120309, end: 20130215

REACTIONS (10)
  - Death [Fatal]
  - Wheezing [Unknown]
  - Respiratory rate increased [Unknown]
  - Body temperature decreased [Unknown]
  - Muscle spasms [Not Recovered/Not Resolved]
  - Bone pain [Not Recovered/Not Resolved]
  - Myalgia [Unknown]
  - Chest pain [Unknown]
  - Productive cough [Unknown]
  - Dyspnoea [Unknown]
